FAERS Safety Report 5806721-8 (Version None)
Quarter: 2008Q3

REPORT INFORMATION
  Report Type: 
  Country: None (occurrence: None)
  Receive Date: 20080709
  Receipt Date: 20080709
  Transmission Date: 20090109
  Serious: Yes (Other)
  Sender: FDA-Public Use
  Company Number: None

PATIENT
  Age: 44 Year
  Sex: Female
  Weight: 53.0709 kg

DRUGS (1)
  1. LEVAQUIN [Suspect]
     Indication: BRONCHITIS
     Dosage: 1 TAB TWICE A DAY PO
     Route: 048
     Dates: start: 20060420, end: 20060420

REACTIONS (4)
  - HYPOAESTHESIA [None]
  - INSOMNIA [None]
  - PARANOIA [None]
  - SENSATION OF HEAVINESS [None]
